FAERS Safety Report 16737227 (Version 4)
Quarter: 2022Q3

REPORT INFORMATION
  Report Type: Report from Study
  Country: DE (occurrence: DE)
  Receive Date: 20190823
  Receipt Date: 20220901
  Transmission Date: 20221026
  Serious: Yes (Hospitalization, Other)
  Sender: FDA-Public Use
  Company Number: None

PATIENT
  Sex: Female

DRUGS (17)
  1. ZOLEDRONIC ACID [Suspect]
     Active Substance: ZOLEDRONIC ACID
     Indication: Product used for unknown indication
     Dosage: 4 MG, UNK
     Route: 065
     Dates: start: 20130116, end: 20140616
  2. LETROZOLE [Suspect]
     Active Substance: LETROZOLE
     Indication: Product used for unknown indication
     Dosage: 2.5 MG, UNK
     Route: 065
     Dates: start: 20130508
  3. LETROZOLE [Suspect]
     Active Substance: LETROZOLE
     Dosage: UNK
     Route: 065
     Dates: start: 20140929
  4. METAMIZOLE [Concomitant]
     Active Substance: METAMIZOLE
     Indication: Pain
     Dosage: UNK
     Route: 065
  5. METOPROLOL SUCCINATE [Concomitant]
     Active Substance: METOPROLOL SUCCINATE
     Indication: Hypertension
     Dosage: UNK
     Route: 065
  6. METAMIZOLE [Concomitant]
     Active Substance: METAMIZOLE
     Indication: Pain
     Dosage: UNK
     Route: 065
     Dates: start: 201209
  7. TILIDINE [Concomitant]
     Active Substance: TILIDINE
     Indication: Pain
     Dosage: UNK
     Route: 065
     Dates: start: 201209
  8. HYDROCHLOROTHIAZIDE\OLMESARTAN MEDOXOMIL [Concomitant]
     Active Substance: HYDROCHLOROTHIAZIDE\OLMESARTAN MEDOXOMIL
     Indication: Hypertension
     Dosage: UNK
     Route: 065
  9. IBANDRONATE SODIUM [Concomitant]
     Active Substance: IBANDRONATE SODIUM
     Indication: Breast cancer
     Dosage: UNK
     Route: 065
     Dates: start: 20140929
  10. VALSARTAN [Concomitant]
     Active Substance: VALSARTAN
     Indication: Hypertension
     Dosage: 160 MILLIGRAM
     Route: 065
     Dates: start: 1999
  11. PANTOPRAZOLE [Concomitant]
     Active Substance: PANTOPRAZOLE
     Indication: Product used for unknown indication
     Dosage: UNK
     Route: 065
  12. TORSEMIDE [Concomitant]
     Active Substance: TORSEMIDE
     Indication: Hypertension
     Dosage: UNK
     Route: 065
     Dates: start: 201606
  13. CALCIUM CARBONATE\CHOLECALCIFEROL [Concomitant]
     Active Substance: CALCIUM CARBONATE\CHOLECALCIFEROL
     Indication: Prophylaxis
     Dosage: UNK
     Route: 065
     Dates: start: 201604
  14. PREDNISOLONE [Concomitant]
     Active Substance: PREDNISOLONE
     Indication: Product used for unknown indication
     Dosage: 10 MILLIGRAM
     Route: 065
     Dates: start: 201604
  15. MARCUMAR [Concomitant]
     Active Substance: PHENPROCOUMON
     Indication: Arrhythmia
     Dosage: UNK
     Route: 065
     Dates: start: 201601
  16. MARCUMAR [Concomitant]
     Active Substance: PHENPROCOUMON
     Indication: Atrial fibrillation
     Dosage: UNK
     Route: 065
  17. MESTINON [Concomitant]
     Active Substance: PYRIDOSTIGMINE BROMIDE
     Indication: Muscular weakness
     Dosage: 180 MILLIGRAM
     Route: 065
     Dates: start: 201604

REACTIONS (10)
  - Polyneuropathy [Not Recovered/Not Resolved]
  - Cardiac failure [Unknown]
  - Urosepsis [Not Recovered/Not Resolved]
  - Fall [Not Recovered/Not Resolved]
  - Urinary tract infection [Not Recovered/Not Resolved]
  - Dyspnoea exertional [Not Recovered/Not Resolved]
  - Acute kidney injury [Not Recovered/Not Resolved]
  - Dizziness [Not Recovered/Not Resolved]
  - Vomiting [Not Recovered/Not Resolved]
  - Bone pain [Not Recovered/Not Resolved]

NARRATIVE: CASE EVENT DATE: 20140929
